FAERS Safety Report 20059123 (Version 1)
Quarter: 2021Q4

REPORT INFORMATION
  Report Type: Spontaneous
  Country: US (occurrence: None)
  Receive Date: 20211111
  Receipt Date: 20211111
  Transmission Date: 20220303
  Serious: Yes (Other)
  Sender: FDA-Public Use
  Company Number: US-ROCHE-2947950

PATIENT
  Age: 67 Year
  Sex: Male
  Weight: 72.640 kg

DRUGS (1)
  1. OCREVUS [Suspect]
     Active Substance: OCRELIZUMAB
     Indication: Primary progressive multiple sclerosis
     Dosage: HER LAST INFUSION  MARCH 2021
     Route: 042

REACTIONS (6)
  - SARS-CoV-2 antibody test negative [Unknown]
  - Multiple sclerosis [Unknown]
  - Multiple sclerosis [Unknown]
  - Pain in extremity [Unknown]
  - Dysphagia [Unknown]
  - COVID-19 [Unknown]

NARRATIVE: CASE EVENT DATE: 20211006
